FAERS Safety Report 6054107-6 (Version None)
Quarter: 2009Q1

REPORT INFORMATION
  Report Type: 
  Country: None (occurrence: None)
  Receive Date: 20090123
  Receipt Date: 20090123
  Transmission Date: 20090719
  Serious: Yes (Life-Threatening, Hospitalization)
  Sender: FDA-Public Use
  Company Number: None

PATIENT
  Age: 51 Year
  Sex: Male
  Weight: 79 kg

DRUGS (7)
  1. ADDERALL 20 [Suspect]
     Indication: ATTENTION DEFICIT/HYPERACTIVITY DISORDER
     Dosage: 20 MG 12 AM PO
     Route: 048
     Dates: start: 20080724, end: 20090121
  2. ADDERALL 10 [Suspect]
     Indication: ATTENTION DEFICIT/HYPERACTIVITY DISORDER
     Dosage: 10 MG 12 NOON PO
     Route: 048
     Dates: start: 20080724, end: 20090121
  3. HYDROXYZINE [Concomitant]
  4. PRILOSEC [Concomitant]
  5. ABILIFY [Concomitant]
  6. DEPAKOTE ER [Concomitant]
  7. ZOCOR [Concomitant]

REACTIONS (1)
  - ACUTE MYOCARDIAL INFARCTION [None]
